FAERS Safety Report 13583114 (Version 1)
Quarter: 2017Q2

REPORT INFORMATION
  Report Type: Spontaneous
  Country: RO (occurrence: RO)
  Receive Date: 20170525
  Receipt Date: 20170525
  Transmission Date: 20170830
  Serious: Yes (Hospitalization, Disabling)
  Sender: FDA-Public Use
  Company Number: PHHY2017RO073824

PATIENT
  Age: 60 Year
  Sex: Female

DRUGS (4)
  1. TYVERB [Suspect]
     Active Substance: LAPATINIB
     Dosage: 5 DF, QD
     Route: 048
  2. ANASTROZOL [Concomitant]
     Active Substance: ANASTROZOLE
     Indication: BREAST CANCER METASTATIC
     Dosage: UNK
     Route: 048
     Dates: start: 20170305, end: 20170516
  3. TYVERB [Suspect]
     Active Substance: LAPATINIB
     Dosage: 4 DF, QD
     Route: 048
     Dates: end: 20170516
  4. TYVERB [Suspect]
     Active Substance: LAPATINIB
     Indication: BREAST CANCER METASTATIC
     Dosage: 6 DF, QD
     Route: 048
     Dates: start: 20170305

REACTIONS (12)
  - Arthralgia [Not Recovered/Not Resolved]
  - Paraesthesia [Not Recovered/Not Resolved]
  - Lacrimation increased [Not Recovered/Not Resolved]
  - Transaminases increased [Not Recovered/Not Resolved]
  - Blood lactate dehydrogenase increased [Not Recovered/Not Resolved]
  - Nausea [Not Recovered/Not Resolved]
  - Ophthalmic herpes zoster [Unknown]
  - Gingival pain [Not Recovered/Not Resolved]
  - Erythema [Not Recovered/Not Resolved]
  - Vomiting [Not Recovered/Not Resolved]
  - Blood alkaline phosphatase increased [Not Recovered/Not Resolved]
  - Skin swelling [Not Recovered/Not Resolved]

NARRATIVE: CASE EVENT DATE: 20170406
